FAERS Safety Report 23198506 (Version 2)
Quarter: 2024Q1

REPORT INFORMATION
  Report Type: Spontaneous
  Country: CA (occurrence: CA)
  Receive Date: 20231117
  Receipt Date: 20240229
  Transmission Date: 20240409
  Serious: Yes (Other)
  Sender: FDA-Public Use
  Company Number: CA-ELI_LILLY_AND_COMPANY-CA202311004127

PATIENT
  Age: 10 Month
  Sex: Male

DRUGS (4)
  1. SOMATROPIN [Suspect]
     Active Substance: SOMATROPIN
     Indication: Prader-Willi syndrome
     Dosage: 150 UG, DAILY
     Route: 058
  2. SOMATROPIN [Suspect]
     Active Substance: SOMATROPIN
     Indication: Prader-Willi syndrome
     Dosage: 150 UG, DAILY
     Route: 058
     Dates: start: 2021, end: 202207
  3. SOMATROPIN [Suspect]
     Active Substance: SOMATROPIN
     Dosage: 250 UG, DAILY
     Route: 058
     Dates: start: 202207
  4. SYNTHROID [Concomitant]
     Active Substance: LEVOTHYROXINE SODIUM
     Indication: Product used for unknown indication
     Dosage: 12.5 UG, UNKNOWN

REACTIONS (6)
  - Decreased appetite [Not Recovered/Not Resolved]
  - Fluid intake reduced [Unknown]
  - Illness [Not Recovered/Not Resolved]
  - Teething [Unknown]
  - Sleep apnoea syndrome [Recovering/Resolving]
  - Off label use [Unknown]

NARRATIVE: CASE EVENT DATE: 20211101
